FAERS Safety Report 6692750-1 (Version None)
Quarter: 2010Q2

REPORT INFORMATION
  Report Type: 
  Country: None (occurrence: None)
  Receive Date: 20100422
  Receipt Date: 20100417
  Transmission Date: 20101027
  Serious: Yes (Hospitalization)
  Sender: FDA-Public Use
  Company Number: PHHY2010US24483

PATIENT
  Sex: Female
  Weight: 60 kg

DRUGS (2)
  1. EXJADE [Suspect]
     Indication: SICKLE CELL ANAEMIA
     Dosage: 1000 MG DAILY
     Route: 048
     Dates: start: 20091230
  2. FOLIC ACID [Concomitant]
     Dosage: UNK

REACTIONS (1)
  - ULCER [None]
